FAERS Safety Report 20591671 (Version 2)
Quarter: 2022Q2

REPORT INFORMATION
  Report Type: Report from Study
  Country: US (occurrence: US)
  Receive Date: 20220314
  Receipt Date: 20220504
  Transmission Date: 20220720
  Serious: No
  Sender: FDA-Public Use
  Company Number: US-NOVARTISTESTPH-NVSC2022US056747

PATIENT
  Sex: Female

DRUGS (1)
  1. COSENTYX [Suspect]
     Active Substance: SECUKINUMAB
     Indication: Paternal exposure during pregnancy
     Dosage: UNK (PATERNAL EXPOSURE DURING 2 DOSAGE FORM, QMO (CONCENTRATION 150 MG)
     Route: 050

REACTIONS (2)
  - Exposure via partner [Unknown]
  - Normal newborn [Unknown]
